FAERS Safety Report 20649377 (Version 1)
Quarter: 2022Q1

REPORT INFORMATION
  Report Type: Spontaneous
  Country: UG (occurrence: UG)
  Receive Date: 20220329
  Receipt Date: 20220329
  Transmission Date: 20220424
  Serious: Yes (Other)
  Sender: FDA-Public Use
  Company Number: UG-GILEAD-2022-0575178

PATIENT
  Sex: Male
  Weight: 71 kg

DRUGS (11)
  1. VIREAD [Suspect]
     Active Substance: TENOFOVIR DISOPROXIL FUMARATE
     Indication: HIV infection
     Dosage: UNK
     Route: 065
     Dates: start: 20210301
  2. LAMIVUDINE [Concomitant]
     Active Substance: LAMIVUDINE
  3. DOLUTEGRAVIR [Concomitant]
     Active Substance: DOLUTEGRAVIR
  4. DARUNAVIR [Concomitant]
     Active Substance: DARUNAVIR
  5. RITONAVIR [Concomitant]
     Active Substance: RITONAVIR
  6. MARAVIROC [Concomitant]
     Active Substance: MARAVIROC
  7. ETRAVIRINE [Concomitant]
     Active Substance: ETRAVIRINE
  8. INDAPAMIDE [Concomitant]
     Active Substance: INDAPAMIDE
  9. METFORMIN [Concomitant]
     Active Substance: METFORMIN HYDROCHLORIDE
  10. COTRIMOXAZOLE [Concomitant]
     Active Substance: SULFAMETHOXAZOLE\TRIMETHOPRIM
  11. FLUCONAZOLE [Concomitant]
     Active Substance: FLUCONAZOLE

REACTIONS (3)
  - Drug resistance [Unknown]
  - Nephrolithiasis [Unknown]
  - Blood uric acid increased [Unknown]
